FAERS Safety Report 23228532 (Version 2)
Quarter: 2023Q4

REPORT INFORMATION
  Report Type: Spontaneous
  Country: AU (occurrence: AU)
  Receive Date: 20231125
  Receipt Date: 20231206
  Transmission Date: 20240109
  Serious: Yes (Hospitalization)
  Sender: FDA-Public Use
  Company Number: AU-BAYER-2023A164027

PATIENT
  Age: 29 Year
  Sex: Female
  Weight: 89.2 kg

DRUGS (3)
  1. MIRENA [Suspect]
     Active Substance: LEVONORGESTREL
     Dosage: 20?G/DAY
     Route: 015
     Dates: start: 20230511
  2. ETRASIMOD [Suspect]
     Active Substance: ETRASIMOD
     Indication: Crohn^s disease
     Dosage: UNK
     Dates: start: 20230511
  3. TAPENTADOL [Concomitant]
     Active Substance: TAPENTADOL
     Indication: Abdominal pain lower
     Dosage: UNK
     Dates: start: 20230115

REACTIONS (5)
  - Abdominal pain lower [Recovering/Resolving]
  - Endometriosis [Recovering/Resolving]
  - Menstruation irregular [None]
  - Anal incontinence [None]
  - Device expulsion [None]

NARRATIVE: CASE EVENT DATE: 20231108
